FAERS Safety Report 9834322 (Version 1)
Quarter: 2014Q1

REPORT INFORMATION
  Report Type: Spontaneous
  Country: US (occurrence: US)
  Receive Date: 20140122
  Receipt Date: 20140122
  Transmission Date: 20141002
  Serious: Yes (Other)
  Sender: FDA-Public Use
  Company Number: US-SA-2014SA007807

PATIENT
  Age: 75 Year
  Sex: Female
  Weight: 74 kg

DRUGS (4)
  1. AVAPRO [Suspect]
     Indication: HYPERTENSION
     Route: 065
  2. NORVASC [Suspect]
     Indication: HYPERTENSION
     Route: 048
  3. LOSARTAN [Suspect]
     Indication: HYPERTENSION
     Route: 065
  4. ALL OTHER THERAPEUTIC PRODUCTS [Concomitant]
     Dosage: 4 TIMES IN WEEK.

REACTIONS (1)
  - Blindness [Unknown]
